FAERS Safety Report 4702953-0 (Version None)
Quarter: 2005Q2

REPORT INFORMATION
  Report Type: 
  Country: None (occurrence: None)
  Receive Date: 20050627
  Receipt Date: 20050621
  Transmission Date: 20051028
  Serious: Yes (Death)
  Sender: FDA-Public Use
  Company Number: B0385093A

PATIENT

DRUGS (6)
  1. ALKERAN [Suspect]
  2. FLUDARABINE PHOSPHATE [Suspect]
     Dosage: 200 MG/M2
  3. THIOTEPA [Suspect]
     Dosage: 10 MG/KG
  4. ORTHOCLONE OKT3 [Concomitant]
  5. MYCOPHENOLATE MOFETIL [Concomitant]
  6. RITUXIMAB [Concomitant]

REACTIONS (1)
  - CARDIAC FAILURE [None]
